FAERS Safety Report 11585283 (Version 7)
Quarter: 2016Q1

REPORT INFORMATION
  Report Type: Spontaneous
  Country: US (occurrence: US)
  Receive Date: 20151001
  Receipt Date: 20160218
  Transmission Date: 20160525
  Serious: Yes (Hospitalization, Congenital Anomaly, Other)
  Sender: FDA-Public Use
  Company Number: US-GILEAD-2015-0173697

PATIENT
  Age: 1 Day
  Sex: Female

DRUGS (5)
  1. ISENTRESS [Concomitant]
     Active Substance: RALTEGRAVIR POTASSIUM
     Indication: HIV INFECTION
     Dosage: UNK UNKNOWN, UNK
     Dates: start: 20150313
  2. TRUVADA [Suspect]
     Active Substance: EMTRICITABINE\TENOFOVIR DISOPROXIL FUMARATE
     Indication: HIV INFECTION
     Dosage: UNK UNKNOWN, UNK
     Route: 064
     Dates: start: 20150313
  3. VALTREX [Concomitant]
     Active Substance: VALACYCLOVIR HYDROCHLORIDE
     Indication: HERPES SIMPLEX
     Dosage: UNK UNKNOWN, UNK
     Route: 065
     Dates: start: 20150313
  4. TYLENOL [Concomitant]
     Active Substance: ACETAMINOPHEN
     Indication: MIGRAINE
     Dosage: UNK
     Dates: start: 2015
  5. HARVONI [Suspect]
     Active Substance: LEDIPASVIR\SOFOSBUVIR
     Indication: HEPATITIS C
     Dosage: UNK UNKNOWN, UNK
     Route: 064
     Dates: start: 20150317, end: 20150511

REACTIONS (3)
  - Foetal exposure during pregnancy [Recovered/Resolved]
  - Hydrocephalus [Recovered/Resolved]
  - Meningomyelocele [Recovered/Resolved]

NARRATIVE: CASE EVENT DATE: 20150313
